FAERS Safety Report 5970319-1 (Version None)
Quarter: 2008Q4

REPORT INFORMATION
  Report Type: 
  Country: None (occurrence: None)
  Receive Date: 20081126
  Receipt Date: 20081017
  Transmission Date: 20090506
  Serious: No
  Sender: FDA-Public Use
  Company Number: US-ABBOTT-08P-163-0482936-00

PATIENT
  Sex: Female

DRUGS (6)
  1. SIMCOR [Suspect]
     Indication: DRUG USE FOR UNKNOWN INDICATION
     Dosage: 500/20
  2. PREGABALIN [Concomitant]
     Indication: DRUG USE FOR UNKNOWN INDICATION
  3. VYTORIN [Concomitant]
     Indication: DRUG USE FOR UNKNOWN INDICATION
  4. METFORMIN HCL [Concomitant]
     Indication: DRUG USE FOR UNKNOWN INDICATION
  5. GLYBURIDE [Concomitant]
     Indication: DRUG USE FOR UNKNOWN INDICATION
  6. RANITIDINE [Concomitant]
     Indication: DRUG USE FOR UNKNOWN INDICATION

REACTIONS (4)
  - DIZZINESS [None]
  - FEELING HOT [None]
  - FLUID RETENTION [None]
  - SWELLING [None]
